FAERS Safety Report 18973785 (Version 4)
Quarter: 2021Q4

REPORT INFORMATION
  Report Type: Report from Study
  Country: JP (occurrence: JP)
  Receive Date: 20210305
  Receipt Date: 20211220
  Transmission Date: 20220303
  Serious: Yes (Hospitalization)
  Sender: FDA-Public Use
  Company Number: JP-EISAI-202010549_BOLD-LF_C_1

PATIENT
  Age: 72 Year
  Sex: Male
  Weight: 60 kg

DRUGS (23)
  1. ERIBULIN [Suspect]
     Active Substance: ERIBULIN
     Indication: Small cell lung cancer
     Route: 042
     Dates: start: 20210224, end: 20210224
  2. ERIBULIN [Suspect]
     Active Substance: ERIBULIN
     Route: 042
     Dates: start: 202103, end: 20211020
  3. NIVOLUMAB [Suspect]
     Active Substance: NIVOLUMAB
     Indication: Small cell lung cancer
     Route: 041
     Dates: start: 20210224, end: 20211020
  4. AMLODIPINE [Concomitant]
     Active Substance: AMLODIPINE BESYLATE
     Indication: Hypertension
     Route: 048
  5. CODEINE PHOSPHATE [Concomitant]
     Active Substance: CODEINE PHOSPHATE
     Indication: Cough
     Route: 048
  6. MAGNESIUM OXIDE [Concomitant]
     Active Substance: MAGNESIUM OXIDE
     Indication: Constipation
     Route: 048
  7. BROTIZOLAM [Concomitant]
     Active Substance: BROTIZOLAM
     Indication: Insomnia
     Route: 048
  8. DEXAMETHASONE SODIUM PHOSPHATE [Concomitant]
     Active Substance: DEXAMETHASONE SODIUM PHOSPHATE
     Indication: Chemotherapy side effect prophylaxis
     Route: 042
     Dates: start: 20210224
  9. PEGFILGRASTIM [Concomitant]
     Active Substance: PEGFILGRASTIM
     Indication: Chemotherapy side effect prophylaxis
     Route: 058
     Dates: start: 20210224
  10. GASTER [Concomitant]
     Active Substance: FAMOTIDINE
     Indication: Chemotherapy side effect prophylaxis
     Route: 042
     Dates: start: 20210224
  11. ROSUVASTATIN OD [Concomitant]
     Indication: Dyslipidaemia
     Route: 048
  12. DEXTROMETHORPHAN HYDROBROMIDE [Concomitant]
     Active Substance: DEXTROMETHORPHAN HYDROBROMIDE
     Indication: Cough
     Route: 048
  13. FEBUXOSTAT [Concomitant]
     Active Substance: FEBUXOSTAT
     Indication: Hyperuricaemia
     Route: 048
  14. CARBAZOCHROME SODIUM SULFONATE HYDRATE [Concomitant]
     Indication: Cough
     Route: 048
  15. TRANEXAMIC ACID [Concomitant]
     Active Substance: TRANEXAMIC ACID
     Indication: Haemoptysis
     Route: 048
  16. CARBOCYSTEINE [Concomitant]
     Active Substance: CARBOCYSTEINE
     Indication: Sinusitis
     Route: 048
  17. BENPROPERINE PHOSPHATE [Concomitant]
     Active Substance: BENPROPERINE PHOSPHATE
     Indication: Cough
     Route: 048
  18. SALIPARA [Concomitant]
     Indication: Cough
     Dosage: LIQUID FORMULATION FOR INTERNAL USE
     Route: 048
  19. HERBALS [Concomitant]
     Active Substance: HERBALS
     Indication: Cough
     Dosage: LIQUID FORMULATION FOR INTERNAL USE
     Route: 048
  20. RINDERON V [Concomitant]
     Active Substance: BETAMETHASONE VALERATE
     Indication: Urticaria
     Route: 061
  21. FUNGIZONE [Concomitant]
     Active Substance: AMPHOTERICIN B
     Indication: Tongue coated
     Route: 048
  22. COLCHICINE [Concomitant]
     Active Substance: COLCHICINE
     Indication: Hyperuricaemia
     Route: 048
  23. POLARAMINE [Concomitant]
     Active Substance: DEXCHLORPHENIRAMINE MALEATE
     Indication: Chemotherapy side effect prophylaxis
     Route: 048
     Dates: start: 20210224

REACTIONS (1)
  - Decreased appetite [Recovered/Resolved]

NARRATIVE: CASE EVENT DATE: 20210227
